FAERS Safety Report 22321483 (Version 1)
Quarter: 2023Q2

REPORT INFORMATION
  Report Type: Spontaneous
  Country: US (occurrence: US)
  Receive Date: 20230515
  Receipt Date: 20230515
  Transmission Date: 20230722
  Serious: Yes (Death, Other)
  Sender: FDA-Public Use
  Company Number: US-HORIZON THERAPEUTICS-HZN-2023-003619

PATIENT

DRUGS (2)
  1. PREDNISONE [Suspect]
     Active Substance: PREDNISONE
     Indication: Immunosuppression
     Dosage: 40 MG/DAY
     Route: 065
  2. CYCLOPHOSPHAMIDE [Concomitant]
     Active Substance: CYCLOPHOSPHAMIDE
     Indication: Glomerulonephritis
     Dosage: 1 G/DOSE

REACTIONS (1)
  - Nocardiosis [Fatal]
